FAERS Safety Report 7732054-9 (Version None)
Quarter: 2011Q3

REPORT INFORMATION
  Report Type: 
  Country: None (occurrence: None)
  Receive Date: 20110906
  Receipt Date: 20110727
  Transmission Date: 20111222
  Serious: No
  Sender: FDA-Public Use
  Company Number: US-AMGEN-USASP2011038385

PATIENT
  Age: 74 Year
  Sex: Female

DRUGS (3)
  1. CALCIUM CARBONATE [Concomitant]
     Dosage: UNK
  2. BETA BLOCKING AGENTS [Concomitant]
     Dosage: UNK
  3. PROLIA [Suspect]
     Indication: OSTEOPOROSIS POSTMENOPAUSAL
     Dosage: 60 MG, Q6MO
     Dates: start: 20110630

REACTIONS (6)
  - FLATULENCE [None]
  - GASTROINTESTINAL DISORDER [None]
  - ABDOMINAL DISCOMFORT [None]
  - MUSCULOSKELETAL DISCOMFORT [None]
  - LIMB DISCOMFORT [None]
  - MENTAL STATUS CHANGES [None]
